FAERS Safety Report 6555187-1 (Version None)
Quarter: 2010Q1

REPORT INFORMATION
  Report Type: 
  Country: None (occurrence: None)
  Receive Date: 20100128
  Receipt Date: 20100119
  Transmission Date: 20100710
  Serious: Yes (Hospitalization)
  Sender: FDA-Public Use
  Company Number: US-ASTRAZENECA-2010SE02327

PATIENT
  Sex: Female

DRUGS (1)
  1. SEROQUEL [Suspect]
     Indication: PARKINSON'S DISEASE
     Dosage: DAILY
     Route: 048

REACTIONS (3)
  - FATIGUE [None]
  - HALLUCINATION [None]
  - PSYCHIATRIC SYMPTOM [None]
